FAERS Safety Report 9134829 (Version 1)
Quarter: 2013Q1

REPORT INFORMATION
  Report Type: Spontaneous
  Country: CH (occurrence: CH)
  Receive Date: 20130304
  Receipt Date: 20130304
  Transmission Date: 20140127
  Serious: Yes (Hospitalization)
  Sender: FDA-Public Use
  Company Number: PHHY2013CH018174

PATIENT
  Age: 91 None
  Sex: Female
  Weight: 56 kg

DRUGS (12)
  1. DIGOXIN [Suspect]
     Indication: ATRIAL FIBRILLATION
     Dosage: 0.25 MG, QD
     Route: 048
     Dates: start: 20121207, end: 20130104
  2. DILZEM [Interacting]
     Indication: ATRIAL FIBRILLATION
     Dosage: 90 MG, BID
     Route: 048
     Dates: end: 20121214
  3. SINTROM [Concomitant]
     Indication: ATRIAL FIBRILLATION
     Dosage: 1 MG, QD
     Route: 048
  4. BELOC [Concomitant]
     Indication: ATRIAL FIBRILLATION
     Dosage: 100 MG, QD
     Route: 048
  5. LISINOPRIL [Concomitant]
     Indication: HYPERTENSION
     Dosage: 5 MG, QD
     Route: 048
  6. TOREM [Concomitant]
     Indication: HYPERTENSION
     Dosage: 20 MG, QD
     Route: 048
  7. SIMCORA [Concomitant]
     Indication: HYPERCHOLESTEROLAEMIA
     Dosage: 20 MG, QD
     Route: 048
  8. ARIMIDEX [Concomitant]
     Indication: BREAST DISORDER
     Dosage: 1 MG, QD
     Route: 048
     Dates: start: 201004
  9. TEMESTA [Concomitant]
     Indication: ANXIETY DISORDER
     Dosage: 0.5 MG, QD
     Route: 048
     Dates: end: 20130107
  10. BONVIVA [Concomitant]
     Indication: OSTEOPOROSIS
     Dosage: 150 MG, QMO
     Route: 048
  11. CALCIUM SANDOZ FORTE + D [Concomitant]
     Indication: OSTEOPOROSIS
     Dosage: 1 DF, BID
     Route: 048
  12. FOLATE [Concomitant]
     Indication: HYPOVITAMINOSIS
     Dosage: 5 MG, QD
     Route: 048

REACTIONS (9)
  - Sensory disturbance [Recovering/Resolving]
  - Dysphagia [Recovered/Resolved]
  - Weight decreased [Recovering/Resolving]
  - Chromatopsia [Recovering/Resolving]
  - Toxicity to various agents [Recovered/Resolved]
  - Hallucination [Recovering/Resolving]
  - Visual impairment [Recovering/Resolving]
  - Vomiting [Recovered/Resolved]
  - Drug prescribing error [Recovering/Resolving]
